FAERS Safety Report 17477543 (Version 1)
Quarter: 2020Q1

REPORT INFORMATION
  Report Type: Spontaneous
  Country: SI (occurrence: SI)
  Receive Date: 20200228
  Receipt Date: 20200228
  Transmission Date: 20200409
  Serious: Yes (Other)
  Sender: FDA-Public Use
  Company Number: SI-PFIZER INC-2020085936

PATIENT
  Age: 79 Year
  Sex: Male

DRUGS (8)
  1. BISOPROLOL [Suspect]
     Active Substance: BISOPROLOL
     Dosage: 5 MG, UNK
     Route: 065
  2. LERKANIDIPIN 2CARE4 [Concomitant]
     Dosage: 10 MG, UNK
     Route: 065
  3. FUROSEMIDE. [Suspect]
     Active Substance: FUROSEMIDE
     Dosage: 40 MG, UNK
     Route: 065
  4. PERINDOPRIL [Suspect]
     Active Substance: PERINDOPRIL
     Dosage: 5 MG, 2X/DAY (Q12H)
     Route: 065
  5. ATORVASTATIN CALCIUM. [Suspect]
     Active Substance: ATORVASTATIN CALCIUM
     Dosage: 20 MG, UNK
     Route: 065
  6. APIXABAN [Concomitant]
     Active Substance: APIXABAN
     Dosage: 5 MG, Q12H
     Route: 065
  7. GLIKLAZID ACTAVIS [Concomitant]
     Dosage: 60 MG, UNK
     Route: 065
  8. METFORMINE [METFORMIN HYDROCHLORIDE] [Concomitant]
     Active Substance: METFORMIN HYDROCHLORIDE
     Dosage: 500 MG, 3X/DAY (Q8H)
     Route: 065

REACTIONS (11)
  - Ejection fraction decreased [Unknown]
  - Oedema peripheral [Unknown]
  - Cardiac murmur [Unknown]
  - Cough [Unknown]
  - Peripheral swelling [Unknown]
  - Dyspnoea [Unknown]
  - Tachycardia [Unknown]
  - Hypertension [Unknown]
  - Pulmonary hypertension [Unknown]
  - Aortic stenosis [Unknown]
  - Rales [Unknown]
